FAERS Safety Report 8083882-4 (Version None)
Quarter: 2012Q1

REPORT INFORMATION
  Report Type: 
  Country: None (occurrence: None)
  Receive Date: 20120128
  Receipt Date: 20110117
  Transmission Date: 20120608
  Serious: No
  Sender: FDA-Public Use
  Company Number: US-ABBOTT-11P-163-0698972-00

PATIENT
  Sex: Female
  Weight: 55.388 kg

DRUGS (6)
  1. NAPROXEN [Concomitant]
     Indication: RHEUMATOID ARTHRITIS
  2. HUMIRA [Suspect]
     Indication: RHEUMATOID ARTHRITIS
     Dates: start: 20100803
  3. TRAMADOL HCL [Concomitant]
     Indication: PAIN
  4. HYDROCODONE BITARTRATE [Concomitant]
     Indication: PAIN
  5. FOLIC ACID [Concomitant]
     Indication: VITAMIN SUPPLEMENTATION
  6. MULTI-VITAMIN [Concomitant]
     Indication: VITAMIN SUPPLEMENTATION

REACTIONS (4)
  - INJECTION SITE ERYTHEMA [None]
  - NASOPHARYNGITIS [None]
  - COUGH [None]
  - INJECTION SITE SWELLING [None]
